FAERS Safety Report 19174796 (Version 1)
Quarter: 2021Q2

REPORT INFORMATION
  Report Type: Spontaneous
  Country: US (occurrence: US)
  Receive Date: 20210423
  Receipt Date: 20210423
  Transmission Date: 20210717
  Serious: No
  Sender: FDA-Public Use
  Company Number: US-PFIZER INC-2021345015

PATIENT
  Age: 59 Year
  Sex: Female
  Weight: 75.28 kg

DRUGS (1)
  1. IBRANCE [Suspect]
     Active Substance: PALBOCICLIB
     Indication: BREAST CANCER FEMALE
     Dosage: 125 MG, DAILY (1 DAILY FOR 21 DAYS)
     Route: 048
     Dates: start: 20210305

REACTIONS (4)
  - Nausea [Unknown]
  - Fatigue [Unknown]
  - Gingival bleeding [Recovered/Resolved]
  - Diarrhoea [Unknown]
